FAERS Safety Report 7710195-X (Version None)
Quarter: 2011Q3

REPORT INFORMATION
  Report Type: 
  Country: None (occurrence: None)
  Receive Date: 20110825
  Receipt Date: 20110811
  Transmission Date: 20111222
  Serious: Yes (Other)
  Sender: FDA-Public Use
  Company Number: AR-GENENTECH-323222

PATIENT
  Sex: Male

DRUGS (1)
  1. LUCENTIS [Suspect]
     Indication: CORNEAL DISORDER
     Dosage: 1 AMP, 1/MONTH
     Route: 031

REACTIONS (2)
  - EYE HAEMORRHAGE [None]
  - THROMBOSIS [None]
